FAERS Safety Report 4273310-9 (Version None)
Quarter: 2004Q1

REPORT INFORMATION
  Report Type: 
  Country: None (occurrence: None)
  Receive Date: 20040115
  Receipt Date: 20040115
  Transmission Date: 20041129
  Serious: Yes (Other)
  Sender: FDA-Public Use
  Company Number: None

PATIENT
  Age: 80 Year
  Sex: Male
  Weight: 109.3169 kg

DRUGS (9)
  1. ULTRAM [Suspect]
     Indication: ARTHRALGIA
     Dosage: 1-2 TABS PO QID PRN
     Route: 048
     Dates: start: 20030604, end: 20030716
  2. ZOCOR [Concomitant]
  3. COUMADIN [Concomitant]
  4. KEFLEX [Concomitant]
  5. LASIX [Concomitant]
  6. DIGOXIN [Concomitant]
  7. CELEBREX [Concomitant]
  8. TYLENOL [Concomitant]
  9. DOCUSATE [Concomitant]

REACTIONS (1)
  - HYPERHIDROSIS [None]
